FAERS Safety Report 11778310 (Version 1)
Quarter: 2015Q4

REPORT INFORMATION
  Report Type: Spontaneous
  Country: US (occurrence: US)
  Receive Date: 20151125
  Receipt Date: 20151125
  Transmission Date: 20160304
  Serious: No
  Sender: FDA-Public Use
  Company Number: US-GLAXOSMITHKLINE-US2015163893

PATIENT
  Age: 64 Year
  Sex: Female

DRUGS (3)
  1. ARNUITY ELLIPTA [Suspect]
     Active Substance: FLUTICASONE FUROATE
     Indication: PRODUCT USED FOR UNKNOWN INDICATION
     Dosage: 1 PUFF(S), QD
     Route: 055
     Dates: start: 201511
  2. XANAX [Concomitant]
     Active Substance: ALPRAZOLAM
  3. PERIDEX [Concomitant]
     Active Substance: CHLORHEXIDINE GLUCONATE

REACTIONS (7)
  - Dry mouth [Unknown]
  - Device use error [Unknown]
  - Headache [Unknown]
  - Gingival bleeding [Recovering/Resolving]
  - Decreased appetite [Not Recovered/Not Resolved]
  - Oral discomfort [Unknown]
  - Oropharyngeal pain [Not Recovered/Not Resolved]

NARRATIVE: CASE EVENT DATE: 20151116
